FAERS Safety Report 6535404-4 (Version None)
Quarter: 2010Q1

REPORT INFORMATION
  Report Type: 
  Country: None (occurrence: None)
  Receive Date: 20100113
  Receipt Date: 20100105
  Transmission Date: 20100710
  Serious: Yes (Other)
  Sender: FDA-Public Use
  Company Number: US-JNJFOC-20100102840

PATIENT

DRUGS (5)
  1. ELMIRON [Suspect]
     Indication: CYSTITIS INTERSTITIAL
     Route: 065
  2. DETROL [Suspect]
     Indication: HYPERTONIC BLADDER
     Route: 065
  3. VESICARE [Suspect]
     Indication: HYPERTONIC BLADDER
     Route: 065
  4. BENADRYL [Suspect]
     Indication: SLEEP DISORDER THERAPY
     Route: 065
  5. SOMINEX (SLEEP) [Suspect]
     Indication: SLEEP DISORDER THERAPY
     Route: 065

REACTIONS (10)
  - ABDOMINAL PAIN LOWER [None]
  - CHEST DISCOMFORT [None]
  - CONSTIPATION [None]
  - CYSTITIS INTERSTITIAL [None]
  - DECREASED APPETITE [None]
  - DISCOMFORT [None]
  - FATIGUE [None]
  - MUSCULOSKELETAL CHEST PAIN [None]
  - PRURITUS [None]
  - RETINAL VASCULAR THROMBOSIS [None]
